FAERS Safety Report 21471131 (Version 1)
Quarter: 2022Q4

REPORT INFORMATION
  Report Type: Report from Study
  Country: MX (occurrence: MX)
  Receive Date: 20221018
  Receipt Date: 20221018
  Transmission Date: 20230113
  Serious: Yes (Other)
  Sender: FDA-Public Use
  Company Number: MX-NOVARTISPH-NVSC2022MX232505

PATIENT
  Sex: Female

DRUGS (2)
  1. KISQALI [Suspect]
     Active Substance: RIBOCICLIB
     Indication: Breast cancer
     Dosage: UNK (START 3 MONTHS AGO AND STOP 2 WEEKS AND A HALF AGO APPROXIMATELY )
     Route: 048
  2. KISQALI [Suspect]
     Active Substance: RIBOCICLIB
     Dosage: UNK (START 2 WEEKS AND A HALF AGO APPROXIMATELY)
     Route: 048

REACTIONS (5)
  - Thrombosis [Unknown]
  - Cardiovascular disorder [Unknown]
  - Nausea [Unknown]
  - Illness [Unknown]
  - Epigastric discomfort [Unknown]
